FAERS Safety Report 15353619 (Version 1)
Quarter: 2018Q4

REPORT INFORMATION
  Report Type: Spontaneous
  Country: DE (occurrence: DE)
  Receive Date: 20180905
  Receipt Date: 20180905
  Transmission Date: 20190204
  Serious: Yes (Death, Congenital Anomaly)
  Sender: FDA-Public Use
  Company Number: DE-ANIPHARMA-2018-DE-000151

PATIENT
  Sex: Male

DRUGS (7)
  1. CYTOTEC [Suspect]
     Active Substance: MISOPROSTOL
     Dosage: UNK
     Route: 050
     Dates: start: 20171218, end: 20171223
  2. NEPRESOL (DIHYDRALAZINE MESILATE) [Suspect]
     Active Substance: DIHYDRALAZINE MESYLATE
     Dosage: 25 MG DAILY
     Route: 050
     Dates: start: 20171103, end: 20171223
  3. ESCITALOPRAM [Suspect]
     Active Substance: ESCITALOPRAM OXALATE
     Dosage: DAILY
     Route: 050
     Dates: start: 20171103, end: 20171223
  4. CANDESARTAN CILEXETIL. [Suspect]
     Active Substance: CANDESARTAN CILEXETIL
     Indication: HYPERTENSION
     Dosage: 16 MG DAILY
     Route: 050
     Dates: start: 20171002, end: 20171103
  5. LEVETIRACETAM. [Suspect]
     Active Substance: LEVETIRACETAM
     Dosage: 1500 MG DAILY
     Route: 050
     Dates: start: 20171002, end: 20171223
  6. THYROXIN [Concomitant]
     Active Substance: LEVOTHYROXINE
     Dosage: UNK
     Route: 050
     Dates: start: 20171002, end: 20171223
  7. PAROXETIN [Suspect]
     Active Substance: PAROXETINE HYDROCHLORIDE
     Dosage: 30 MG DAILY
     Route: 050
     Dates: start: 20171002, end: 20171103

REACTIONS (2)
  - Foetal exposure during pregnancy [Unknown]
  - Anencephaly [Not Recovered/Not Resolved]
